FAERS Safety Report 8965697 (Version 1)
Quarter: 2012Q4

REPORT INFORMATION
  Report Type: Spontaneous
  Country: IT (occurrence: None)
  Receive Date: 20121206
  Receipt Date: 20121206
  Transmission Date: 20130627
  Serious: Yes (Other)
  Sender: FDA-Public Use
  Company Number: AUR-APL-2012-05170

PATIENT
  Age: 8 Year
  Sex: Female

DRUGS (4)
  1. RISPERIDONE (RISPERIDONE) [Suspect]
     Dosage: (2 mg, 1 D), Oral
     Route: 048
     Dates: start: 20120111, end: 20121018
  2. RISPERIDONE (RISPERIDONE) [Suspect]
     Dosage: +ve
  3. RISPERIDONE (RISPERIDONE) [Suspect]
     Dosage: +ve
  4. VALPROIC ACID [Concomitant]

REACTIONS (3)
  - Enuresis [None]
  - Gynaecomastia [None]
  - Psychomotor hyperactivity [None]
